FAERS Safety Report 6255186-3 (Version None)
Quarter: 2009Q3

REPORT INFORMATION
  Report Type: 
  Country: None (occurrence: None)
  Receive Date: 20090702
  Receipt Date: 20090625
  Transmission Date: 20100115
  Serious: Yes (Death, Life-Threatening, Hospitalization)
  Sender: FDA-Public Use
  Company Number: GB-PFIZER INC-2009223181

PATIENT
  Age: 51 Year

DRUGS (4)
  1. ADRIAMYCIN RDF [Suspect]
     Indication: B-CELL LYMPHOMA STAGE III
  2. CYCLOPHOSPHAMIDE [Suspect]
     Indication: B-CELL LYMPHOMA STAGE III
  3. PREDNISOLONE AND PREDNISOLONE STEAGLATE [Suspect]
     Indication: B-CELL LYMPHOMA STAGE III
  4. VINCRISTINE [Suspect]
     Indication: B-CELL LYMPHOMA STAGE III

REACTIONS (4)
  - CANDIDIASIS [None]
  - PNEUMONIA [None]
  - SEPTIC SHOCK [None]
  - STAPHYLOCOCCAL INFECTION [None]
